FAERS Safety Report 18254065 (Version 1)
Quarter: 2020Q3

REPORT INFORMATION
  Report Type: Spontaneous
  Country: US (occurrence: US)
  Receive Date: 20200910
  Receipt Date: 20200910
  Transmission Date: 20201103
  Serious: No
  Sender: FDA-Public Use
  Company Number: US-BIOMARINAP-US-2020-131735

PATIENT
  Age: 14 Month
  Sex: Female
  Weight: 9.6 kg

DRUGS (1)
  1. KUVAN [Suspect]
     Active Substance: SAPROPTERIN DIHYDROCHLORIDE
     Indication: PHENYLKETONURIA
     Dosage: 100 MILLIGRAM, QD
     Route: 048
     Dates: start: 20200730

REACTIONS (4)
  - Decreased appetite [Recovering/Resolving]
  - Psychomotor hyperactivity [Recovering/Resolving]
  - Dermatitis diaper [Recovering/Resolving]
  - Teething [Recovering/Resolving]

NARRATIVE: CASE EVENT DATE: 20200810
